FAERS Safety Report 20574989 (Version 1)
Quarter: 2022Q1

REPORT INFORMATION
  Report Type: Spontaneous
  Country: US (occurrence: US)
  Receive Date: 20220310
  Receipt Date: 20220310
  Transmission Date: 20220423
  Serious: Yes (Death, Other)
  Sender: FDA-Public Use
  Company Number: US-ALVOGEN-2022-ALVOGEN-118489

PATIENT
  Age: 15 Year
  Sex: Male

DRUGS (8)
  1. LISINOPRIL [Suspect]
     Active Substance: LISINOPRIL
     Indication: Suicide attempt
  2. SERTRALINE [Suspect]
     Active Substance: SERTRALINE HYDROCHLORIDE
     Indication: Suicide attempt
  3. PREGABALIN [Suspect]
     Active Substance: PREGABALIN
     Indication: Suicide attempt
  4. LABETALOL [Suspect]
     Active Substance: LABETALOL\LABETALOL HYDROCHLORIDE
     Indication: Suicide attempt
  5. CLONAZEPAM [Suspect]
     Active Substance: CLONAZEPAM
     Indication: Suicide attempt
  6. ALPRAZOLAM [Suspect]
     Active Substance: ALPRAZOLAM
     Indication: Suicide attempt
  7. LOSARTAN [Suspect]
     Active Substance: LOSARTAN
     Indication: Suicide attempt
  8. RIVAROXABAN [Suspect]
     Active Substance: RIVAROXABAN
     Indication: Suicide attempt

REACTIONS (1)
  - Completed suicide [Fatal]
